FAERS Safety Report 7809846-0 (Version None)
Quarter: 2011Q4

REPORT INFORMATION
  Report Type: 
  Country: None (occurrence: None)
  Receive Date: 20111012
  Receipt Date: 20111009
  Transmission Date: 20120403
  Serious: Yes (Hospitalization)
  Sender: FDA-Public Use
  Company Number: US-ABBOTT-11P-163-0862947-00

PATIENT
  Age: 53 Year
  Sex: Male

DRUGS (2)
  1. APRISO [Concomitant]
     Indication: PRODUCT USED FOR UNKNOWN INDICATION
     Dates: end: 20110923
  2. HUMIRA [Suspect]
     Indication: CROHN'S DISEASE
     Route: 058
     Dates: start: 20110401, end: 20110923

REACTIONS (6)
  - CROHN'S DISEASE [None]
  - MUSCLE SPASMS [None]
  - HICCUPS [None]
  - INFECTION [None]
  - HEART RATE IRREGULAR [None]
  - DYSPNOEA [None]
